FAERS Safety Report 8511812-7 (Version None)
Quarter: 2012Q3

REPORT INFORMATION
  Report Type: 
  Country: None (occurrence: None)
  Receive Date: 20120716
  Receipt Date: 20120710
  Transmission Date: 20120928
  Serious: Yes (Death, Congenital Anomaly, Other)
  Sender: FDA-Public Use
  Company Number: US-PFIZER INC-2012166623

PATIENT
  Sex: Female
  Weight: 2.289 kg

DRUGS (2)
  1. MULTI-VITAMINS [Concomitant]
     Dosage: UNK
  2. ZOLOFT [Suspect]
     Indication: DEPRESSION
     Dosage: 5 MG, 2X/DAY
     Route: 064
     Dates: start: 19991001

REACTIONS (7)
  - TALIPES [None]
  - MATERNAL EXPOSURE TIMING UNSPECIFIED [None]
  - HEART RATE INCREASED [None]
  - LIMB REDUCTION DEFECT [None]
  - CONGENITAL SKIN DISORDER [None]
  - DEFORMITY [None]
  - HAND DEFORMITY [None]
